FAERS Safety Report 10518955 (Version 1)
Quarter: 2014Q4

REPORT INFORMATION
  Report Type: Spontaneous
  Country: FI (occurrence: FI)
  Receive Date: 20141015
  Receipt Date: 20141015
  Transmission Date: 20150528
  Serious: Yes (Other)
  Sender: FDA-Public Use
  Company Number: PHHY2014FI131098

PATIENT
  Age: 34 Year
  Sex: Male

DRUGS (1)
  1. VALPROIC ACID. [Suspect]
     Active Substance: VALPROIC ACID
     Indication: EPILEPSY
     Route: 065

REACTIONS (13)
  - Liver disorder [Unknown]
  - Coagulation factor decreased [Unknown]
  - Pancreatitis [Unknown]
  - Blood bilirubin increased [Unknown]
  - Metabolic encephalopathy [Unknown]
  - Jaundice [Unknown]
  - Ammonia increased [Unknown]
  - Generalised tonic-clonic seizure [Unknown]
  - Haemolytic anaemia [Unknown]
  - Hepato-lenticular degeneration [Unknown]
  - Acute hepatic failure [Unknown]
  - Transaminases increased [Unknown]
  - Fatigue [Unknown]
